FAERS Safety Report 7488710-3 (Version None)
Quarter: 2011Q2

REPORT INFORMATION
  Report Type: 
  Country: None (occurrence: None)
  Receive Date: 20110518
  Receipt Date: 20110517
  Transmission Date: 20111010
  Serious: Yes (Life-Threatening, Hospitalization)
  Sender: FDA-Public Use
  Company Number: D0071149A

PATIENT
  Sex: Female
  Weight: 101 kg

DRUGS (1)
  1. VOTRIENT [Suspect]
     Indication: RENAL CANCER METASTATIC
     Dosage: 400MG PER DAY
     Route: 048
     Dates: start: 20110216, end: 20110309

REACTIONS (5)
  - ASPARTATE AMINOTRANSFERASE INCREASED [None]
  - ALANINE AMINOTRANSFERASE INCREASED [None]
  - ABDOMINAL PAIN [None]
  - ACUTE HEPATIC FAILURE [None]
  - LIVER FUNCTION TEST ABNORMAL [None]
